FAERS Safety Report 7639213-4 (Version None)
Quarter: 2011Q3

REPORT INFORMATION
  Report Type: 
  Country: None (occurrence: None)
  Receive Date: 20110721
  Receipt Date: 20110713
  Transmission Date: 20111222
  Serious: Yes (Hospitalization)
  Sender: FDA-Public Use
  Company Number: PYR-11-19

PATIENT
  Age: 39 Year

DRUGS (5)
  1. PYRAZINAMIDE [Suspect]
     Indication: TUBERCULOSIS
  2. ISONIAZID [Concomitant]
  3. RIFAMPICIN [Concomitant]
  4. ETHAMBUTOL HYDROCHLORIDE [Concomitant]
  5. STREPTOMYCIN [Concomitant]

REACTIONS (1)
  - ANAPHYLACTIC REACTION [None]
